FAERS Safety Report 6460597-7 (Version None)
Quarter: 2009Q4

REPORT INFORMATION
  Report Type: 
  Country: None (occurrence: None)
  Receive Date: 20091125
  Receipt Date: 20091125
  Transmission Date: 20100525
  Serious: No
  Sender: FDA-Public Use
  Company Number: None

PATIENT
  Age: 55 Year
  Sex: Female
  Weight: 103.6 kg

DRUGS (1)
  1. METRONIDAZOLE [Suspect]
     Indication: DIVERTICULITIS
     Dosage: METRONIDAZOLE 500 MG. TID TABLET
     Dates: start: 20091104, end: 20091112

REACTIONS (5)
  - DIZZINESS [None]
  - FEELING ABNORMAL [None]
  - MENTAL DISORDER [None]
  - MOOD ALTERED [None]
  - PSYCHOTIC DISORDER [None]
